FAERS Safety Report 5012593-4 (Version None)
Quarter: 2006Q2

REPORT INFORMATION
  Report Type: 
  Country: None (occurrence: None)
  Receive Date: 20060410
  Receipt Date: 20050615
  Transmission Date: 20061013
  Serious: Yes (Disabling)
  Sender: FDA-Public Use
  Company Number: 05P-163-0303301-00

PATIENT
  Age: 28 Year
  Sex: Male
  Weight: 86.2288 kg

DRUGS (5)
  1. DEPAKOTE [Suspect]
     Dosage: ORAL
     Route: 048
     Dates: end: 20050307
  2. LAMOTRIGINE [Suspect]
     Indication: BIPOLAR DISORDER
     Dosage: SEE IMAGE
     Route: 048
     Dates: end: 20050310
  3. LAMOTRIGINE [Suspect]
     Indication: BIPOLAR DISORDER
     Dosage: SEE IMAGE
     Route: 048
     Dates: start: 20050310, end: 20050418
  4. QUETIAPINE FUMARATE [Concomitant]
  5. BUPROPION HYDROCHLORIDE [Concomitant]

REACTIONS (6)
  - BLISTER [None]
  - DEPRESSION [None]
  - NAUSEA [None]
  - PYREXIA [None]
  - RASH [None]
  - VOMITING [None]
